FAERS Safety Report 4443578-4 (Version None)
Quarter: 2004Q3

REPORT INFORMATION
  Report Type: 
  Country: None (occurrence: None)
  Receive Date: 20040908
  Receipt Date: 20040903
  Transmission Date: 20050211
  Serious: Yes (Hospitalization)
  Sender: FDA-Public Use
  Company Number: PHBS2004CH11665

PATIENT
  Age: 69 Year
  Sex: Male

DRUGS (10)
  1. CIBACENE [Suspect]
     Dosage: 10 MG/DAY
     Dates: end: 20040820
  2. ALDACTONE [Suspect]
     Dosage: 25 MG/DAY
     Dates: end: 20040820
  3. NEURONTIN [Concomitant]
     Dosage: 2400 MG/DAY
  4. GLUCOPHAGE [Concomitant]
     Dosage: 1700 MG/DAY
  5. TENORMIN [Concomitant]
     Dosage: 50 MG/DAY
  6. AMARYL [Concomitant]
     Dosage: 2 MG/DAY
  7. LASIX [Concomitant]
     Dosage: 80 MG/DAY
  8. MEDIAVEN [Concomitant]
     Dosage: 60 MG/DAY
  9. MARCOUMAR [Concomitant]
  10. OPTIPEN [Concomitant]
     Dosage: 1 TABLET/DAY
     Route: 048

REACTIONS (4)
  - BLOOD CREATININE INCREASED [None]
  - BLOOD UREA INCREASED [None]
  - HYPERKALAEMIA [None]
  - RESIDUAL URINE VOLUME [None]
